FAERS Safety Report 12229585 (Version 1)
Quarter: 2016Q1

REPORT INFORMATION
  Report Type: Spontaneous
  Country: US (occurrence: None)
  Receive Date: 20160331
  Receipt Date: 20160331
  Transmission Date: 20160526
  Serious: Yes (Disabling)
  Sender: FDA-Public Use
  Company Number: None

PATIENT
  Age: 69 Year
  Sex: Female
  Weight: 100.7 kg

DRUGS (11)
  1. PRED MOXI BROM, 1 GTT [Suspect]
     Active Substance: BROMFENAC\MOXIFLOXACIN\PREDNISONE
     Indication: POSTOPERATIVE CARE
     Route: 031
     Dates: start: 20160303, end: 20160325
  2. CARVADOL [Concomitant]
  3. HYDROLIZINE [Concomitant]
  4. PRED MOXI BROM, 1 GTT [Suspect]
     Active Substance: BROMFENAC\MOXIFLOXACIN\PREDNISONE
     Indication: CATARACT OPERATION
     Route: 031
     Dates: start: 20160303, end: 20160325
  5. LIPOTOR [Concomitant]
  6. VITAMIN D [Concomitant]
     Active Substance: CHOLECALCIFEROL
  7. TYLENOL [Concomitant]
     Active Substance: ACETAMINOPHEN
  8. INSULIN [Concomitant]
     Active Substance: INSULIN NOS
  9. LOSARTIN [Concomitant]
     Active Substance: LOSARTAN
  10. LASIX [Concomitant]
     Active Substance: FUROSEMIDE
  11. GINGER ROOT [Concomitant]
     Active Substance: GINGER

REACTIONS (6)
  - Palpitations [None]
  - Headache [None]
  - Blood test abnormal [None]
  - Urine analysis abnormal [None]
  - Back pain [None]
  - Urine odour abnormal [None]

NARRATIVE: CASE EVENT DATE: 20160305
